FAERS Safety Report 6579422-9 (Version None)
Quarter: 2010Q1

REPORT INFORMATION
  Report Type: 
  Country: None (occurrence: None)
  Receive Date: 20100209
  Receipt Date: 20100209
  Transmission Date: 20100710
  Serious: Yes (Other)
  Sender: FDA-Public Use
  Company Number: None

PATIENT
  Age: 12 Year
  Sex: Male
  Weight: 68.0396 kg

DRUGS (1)
  1. BACTRIM [Suspect]
     Indication: EAR INFECTION
     Dosage: 4 TEASPOONS TWICE DAILY PO
     Route: 048
     Dates: start: 20100203, end: 20100208

REACTIONS (1)
  - RASH [None]
